FAERS Safety Report 12764393 (Version 1)
Quarter: 2016Q3

REPORT INFORMATION
  Report Type: Spontaneous
  Country: CZ (occurrence: CZ)
  Receive Date: 20160920
  Receipt Date: 20160920
  Transmission Date: 20161109
  Serious: Yes (Hospitalization)
  Sender: FDA-Public Use
  Company Number: CZ-ABBVIE-16P-217-1732710-00

PATIENT
  Sex: Male

DRUGS (7)
  1. MEDROL [Concomitant]
     Active Substance: METHYLPREDNISOLONE
     Indication: PRODUCT USED FOR UNKNOWN INDICATION
     Dates: start: 201401
  2. VALPROIC ACID. [Suspect]
     Active Substance: VALPROIC ACID
     Indication: EPILEPSY
     Route: 048
     Dates: start: 201401
  3. DIACOMIT [Concomitant]
     Active Substance: STIRIPENTOL
     Indication: PRODUCT USED FOR UNKNOWN INDICATION
     Dates: start: 201401
  4. KALIUM CHLORATUM SPOFA [Concomitant]
     Indication: PRODUCT USED FOR UNKNOWN INDICATION
     Dates: start: 201401
  5. VIGANTOL [Concomitant]
     Indication: PRODUCT USED FOR UNKNOWN INDICATION
     Dates: start: 201401
  6. FRISIUM [Suspect]
     Active Substance: CLOBAZAM
     Indication: EPILEPSY
     Route: 048
     Dates: start: 201401
  7. HELICID [Concomitant]
     Indication: PRODUCT USED FOR UNKNOWN INDICATION
     Dates: start: 201401

REACTIONS (6)
  - Drug administered to patient of inappropriate age [Unknown]
  - Off label use [Unknown]
  - Drug level increased [Unknown]
  - Incorrect route of drug administration [Unknown]
  - Toxicity to various agents [Recovered/Resolved]
  - Wrong technique in product usage process [Unknown]
